FAERS Safety Report 5049637-X (Version None)
Quarter: 2006Q2

REPORT INFORMATION
  Report Type: 
  Country: None (occurrence: None)
  Receive Date: 20060601
  Receipt Date: 20060301
  Transmission Date: 20061013
  Serious: No
  Sender: FDA-Public Use
  Company Number: US200603000445

PATIENT
  Age: 60 Year
  Sex: Female

DRUGS (1)
  1. CYMBALTA [Suspect]
     Indication: NERVE INJURY
     Dosage: 60 MG
     Dates: start: 20050901

REACTIONS (1)
  - HYPERTENSION [None]
